FAERS Safety Report 7727819-3 (Version None)
Quarter: 2011Q3

REPORT INFORMATION
  Report Type: 
  Country: None (occurrence: None)
  Receive Date: 20110905
  Receipt Date: 20110823
  Transmission Date: 20111222
  Serious: Yes (Hospitalization)
  Sender: FDA-Public Use
  Company Number: US-BIOGENIDEC-2011BI031491

PATIENT
  Age: 34 Year
  Sex: Female

DRUGS (1)
  1. TYSABRI [Suspect]
     Indication: MULTIPLE SCLEROSIS
     Route: 042
     Dates: start: 20100226

REACTIONS (6)
  - COSTOCHONDRITIS [None]
  - PAIN IN EXTREMITY [None]
  - DYSPNOEA [None]
  - SENSORY DISTURBANCE [None]
  - BURNING SENSATION [None]
  - MULTIPLE SCLEROSIS RELAPSE [None]
